FAERS Safety Report 23149461 (Version 4)
Quarter: 2023Q4

REPORT INFORMATION
  Report Type: Spontaneous
  Country: US (occurrence: US)
  Receive Date: 20231106
  Receipt Date: 20231201
  Transmission Date: 20240110
  Serious: Yes (Hospitalization, Other)
  Sender: FDA-Public Use
  Company Number: US-SK LIFE SCIENCE, INC.-SKPVG-2022-000945

PATIENT

DRUGS (20)
  1. XCOPRI [Suspect]
     Active Substance: CENOBAMATE
     Indication: Aura
     Dosage: UNK
     Route: 048
     Dates: start: 2021
  2. XCOPRI [Suspect]
     Active Substance: CENOBAMATE
     Indication: Epilepsy
     Dosage: 100 MILLIGRAM
     Route: 048
  3. XCOPRI [Suspect]
     Active Substance: CENOBAMATE
     Indication: Seizure
     Dosage: 150 MILLIGRAM
     Route: 048
     Dates: start: 2022
  4. XCOPRI [Suspect]
     Active Substance: CENOBAMATE
     Dosage: 200 MG ONCE DAILY AT BEDTIME
     Route: 048
     Dates: start: 2022, end: 20221215
  5. XCOPRI [Suspect]
     Active Substance: CENOBAMATE
     Dosage: 250 MILLIGRAM, HAVE BEEN ON THE EXTRA 50MG, ONCE DAILY AT NIGHT
     Route: 048
     Dates: start: 2023, end: 20230407
  6. XCOPRI [Suspect]
     Active Substance: CENOBAMATE
     Dosage: 200 MILLIGRAM, ONCE DAILY AT NIGHT
     Route: 048
     Dates: start: 20230408
  7. XCOPRI [Suspect]
     Active Substance: CENOBAMATE
     Dosage: REGULAR 250MG MAINTENANCE DOSE
     Route: 048
     Dates: start: 2023
  8. XCOPRI [Suspect]
     Active Substance: CENOBAMATE
     Dosage: 300 MILLIGRAM, QD
     Route: 048
     Dates: start: 202310
  9. XCOPRI [Suspect]
     Active Substance: CENOBAMATE
     Dosage: 250 MILLIGRAM, EVERY NIGHT AT BEDTIME
     Route: 048
  10. XCOPRI [Suspect]
     Active Substance: CENOBAMATE
     Dosage: 250 MILLIGRAM, EVERY NIGHT AT BEDTIME
     Route: 048
  11. LAMICTAL [Concomitant]
     Active Substance: LAMOTRIGINE
     Indication: Product used for unknown indication
     Dosage: 100 MILLIGRAM
     Route: 065
  12. LAMICTAL [Concomitant]
     Active Substance: LAMOTRIGINE
     Dosage: 200 MILLIGRAM
     Route: 065
  13. TEGRETOL [Concomitant]
     Active Substance: CARBAMAZEPINE
     Indication: Product used for unknown indication
     Dosage: THREE 200 MG TABLETS
     Route: 065
     Dates: start: 1981
  14. CLONAZEPAM [Concomitant]
     Active Substance: CLONAZEPAM
     Indication: Product used for unknown indication
     Dosage: 1 MG (DECREASED DOSE BY ONE TABLET PER DAY
     Route: 065
     Dates: start: 2013
  15. ATORVASTATIN [Concomitant]
     Active Substance: ATORVASTATIN
     Indication: Blood cholesterol increased
     Dosage: UNK
     Route: 065
  16. HUMIRA [Concomitant]
     Active Substance: ADALIMUMAB
     Indication: Product used for unknown indication
     Dosage: UNK
     Route: 065
  17. SINGULAIR [Concomitant]
     Active Substance: MONTELUKAST SODIUM
     Indication: Product used for unknown indication
     Dosage: UNK
     Route: 065
  18. ADVAIR HFA [Concomitant]
     Active Substance: FLUTICASONE PROPIONATE\SALMETEROL XINAFOATE
     Indication: Product used for unknown indication
     Dosage: UNK
     Route: 065
  19. VENTOLIN [Concomitant]
     Active Substance: ALBUTEROL SULFATE
     Indication: Product used for unknown indication
     Dosage: UNK
     Route: 065
  20. CALCIUM [Concomitant]
     Active Substance: CALCIUM
     Indication: Product used for unknown indication
     Dosage: UNK
     Route: 065

REACTIONS (19)
  - Hospitalisation [Unknown]
  - Loss of consciousness [Recovered/Resolved]
  - Fall [Recovered/Resolved]
  - Feeling abnormal [Recovered/Resolved]
  - Aura [Recovered/Resolved]
  - Drug titration error [Recovered/Resolved]
  - Off label use [Not Recovered/Not Resolved]
  - Therapeutic product effect decreased [Recovered/Resolved]
  - Product prescribing error [Recovered/Resolved]
  - Incorrect dose administered [Recovered/Resolved]
  - Aura [Recovered/Resolved]
  - Condition aggravated [Recovered/Resolved]
  - Dissociation [Unknown]
  - Seizure [Unknown]
  - Feeling abnormal [Unknown]
  - Malaise [Recovered/Resolved]
  - Fatigue [Recovered/Resolved]
  - Dizziness [Unknown]
  - Somnolence [Unknown]

NARRATIVE: CASE EVENT DATE: 20230101
